FAERS Safety Report 9129504 (Version 1)
Quarter: 2013Q1

REPORT INFORMATION
  Report Type: Spontaneous
  Country: NL (occurrence: NL)
  Receive Date: 20130228
  Receipt Date: 20130228
  Transmission Date: 20140127
  Serious: Yes (Other)
  Sender: FDA-Public Use
  Company Number: NL-GLAXOSMITHKLINE-B0871161A

PATIENT
  Age: 59 Year
  Sex: Female

DRUGS (7)
  1. RANITIDINE [Suspect]
     Route: 065
  2. DOCETAXEL [Concomitant]
     Route: 065
     Dates: start: 2005
  3. CARBOPLATIN [Concomitant]
     Route: 065
  4. DOXORUBICIN [Concomitant]
     Route: 065
  5. ETOPOSIDE [Concomitant]
     Route: 048
  6. PACLITAXEL [Concomitant]
     Route: 065
  7. CLEMASTINE [Concomitant]
     Route: 065

REACTIONS (5)
  - Hypersensitivity [Unknown]
  - Nausea [Unknown]
  - Vomiting [Unknown]
  - Micturition urgency [Unknown]
  - Circulatory collapse [Unknown]
